FAERS Safety Report 20817158 (Version 1)
Quarter: 2022Q2

REPORT INFORMATION
  Report Type: Spontaneous
  Country: US (occurrence: None)
  Receive Date: 20220512
  Receipt Date: 20220512
  Transmission Date: 20220720
  Serious: No
  Sender: FDA-Public Use
  Company Number: 2022A163840

PATIENT
  Sex: Male

DRUGS (1)
  1. BUDESONIDE [Suspect]
     Active Substance: BUDESONIDE
     Indication: Asthma
     Route: 055

REACTIONS (3)
  - Device malfunction [Unknown]
  - Inflammation [Unknown]
  - Productive cough [Unknown]
